FAERS Safety Report 20726107 (Version 1)
Quarter: 2022Q2

REPORT INFORMATION
  Report Type: Spontaneous
  Country: US (occurrence: None)
  Receive Date: 20220419
  Receipt Date: 20220419
  Transmission Date: 20220720
  Serious: Yes (Other)
  Sender: FDA-Public Use
  Company Number: None

PATIENT
  Age: 34 Year
  Sex: Male

DRUGS (1)
  1. BUPRENORPHINE AND NALOXONE [Suspect]
     Active Substance: BUPRENORPHINE HYDROCHLORIDE\NALOXONE HYDROCHLORIDE
     Indication: Drug use disorder
     Dosage: FREQUENCY : TWICE A DAY;?
     Route: 060
     Dates: start: 20220414, end: 20220419

REACTIONS (14)
  - Swollen tongue [None]
  - Glossitis [None]
  - Oral mucosal erythema [None]
  - Oedema mucosal [None]
  - Tonsillar erythema [None]
  - Tonsillar hypertrophy [None]
  - Application site reaction [None]
  - Throat irritation [None]
  - Pharyngeal swelling [None]
  - Pharyngeal hypoaesthesia [None]
  - Dyspnoea [None]
  - Product use complaint [None]
  - Nausea [None]
  - Vomiting [None]

NARRATIVE: CASE EVENT DATE: 20220419
